FAERS Safety Report 9023566 (Version 3)
Quarter: 2013Q1

REPORT INFORMATION
  Report Type: Spontaneous
  Country: US (occurrence: US)
  Receive Date: 20130121
  Receipt Date: 20130327
  Transmission Date: 20140127
  Serious: Yes (Other)
  Sender: FDA-Public Use
  Company Number: PHEH2013US001667

PATIENT
  Age: 40 None
  Sex: Female

DRUGS (2)
  1. GILENYA [Suspect]
     Indication: MULTIPLE SCLEROSIS
     Dosage: 0.5 MG, QD
     Route: 048
     Dates: start: 20120912
  2. CELEXA [Concomitant]
     Dosage: 20 MG, QD
     Route: 048

REACTIONS (4)
  - Local swelling [Unknown]
  - Burning sensation [Unknown]
  - Pain in extremity [Unknown]
  - Dyspnoea [Unknown]
